FAERS Safety Report 4397713-7 (Version None)
Quarter: 2004Q3

REPORT INFORMATION
  Report Type: 
  Country: None (occurrence: None)
  Receive Date: 20040713
  Receipt Date: 20040707
  Transmission Date: 20050211
  Serious: Yes (Hospitalization, Disabling)
  Sender: FDA-Public Use
  Company Number: US-JNJFOC-20040300771

PATIENT
  Age: 64 Year
  Sex: Female
  Weight: 120.2032 kg

DRUGS (20)
  1. LEVAQUIN [Suspect]
     Indication: CYSTITIS
     Dosage: 500 MG, 1 IN 1 DAY, ORAL
     Route: 048
     Dates: start: 20030601, end: 20030601
  2. PHENERGAN [Concomitant]
  3. XANAX [Concomitant]
  4. EFFEXOR XR [Concomitant]
  5. NEXIUM [Concomitant]
  6. TOPROL (METOPROLOL SUCCINATE) [Concomitant]
  7. ZANAFLEX [Concomitant]
  8. SYNTHROID [Concomitant]
  9. MOBIC (LEVOTHYROXINE SODIUM) [Concomitant]
  10. MOBIC [Concomitant]
  11. LORCET-HD [Concomitant]
  12. LANTAS (INSULIN GLARGINE) [Concomitant]
  13. HUMALOG [Concomitant]
  14. AVAPRO [Concomitant]
  15. IBUPROFEN [Concomitant]
  16. COMBIVENT [Concomitant]
  17. NEURONTIN [Concomitant]
  18. AMBIEN [Concomitant]
  19. ELAVIL [Concomitant]
  20. FIORICET [Concomitant]

REACTIONS (30)
  - ABASIA [None]
  - ACTIVITIES OF DAILY LIVING IMPAIRED [None]
  - ARTHRALGIA [None]
  - BLOOD PRESSURE INADEQUATELY CONTROLLED [None]
  - CARDIAC FAILURE CONGESTIVE [None]
  - CONDITION AGGRAVATED [None]
  - CYSTITIS [None]
  - DEEP VEIN THROMBOSIS [None]
  - DEHYDRATION [None]
  - DIABETES MELLITUS [None]
  - DISEASE RECURRENCE [None]
  - DRUG INEFFECTIVE [None]
  - DYSGEUSIA [None]
  - DYSPNOEA [None]
  - FAECES DISCOLOURED [None]
  - FLUID OVERLOAD [None]
  - GLOSSODYNIA [None]
  - ILEUS [None]
  - INTESTINAL OBSTRUCTION [None]
  - KERATOCONJUNCTIVITIS SICCA [None]
  - MENTAL IMPAIRMENT [None]
  - MITRAL VALVE INCOMPETENCE [None]
  - NECK PAIN [None]
  - PAIN [None]
  - PAIN IN EXTREMITY [None]
  - PARALYSIS [None]
  - STOMATITIS [None]
  - SUICIDAL IDEATION [None]
  - SWOLLEN TONGUE [None]
  - TRICUSPID VALVE INCOMPETENCE [None]
